FAERS Safety Report 4331638-8 (Version None)
Quarter: 2004Q1

REPORT INFORMATION
  Report Type: 
  Country: None (occurrence: None)
  Receive Date: 20040329
  Receipt Date: 20040316
  Transmission Date: 20041129
  Serious: No
  Sender: FDA-Public Use
  Company Number: 2004UW05585

PATIENT
  Age: 62 Year
  Sex: Male
  Weight: 53.5244 kg

DRUGS (7)
  1. XYLOCAINE W/ EPINEPHRINE [Suspect]
     Indication: LOCAL ANAESTHESIA
     Dosage: 50 ML IF
     Dates: start: 20031124, end: 20031124
  2. XYLOCAINE W/ EPINEPHRINE [Suspect]
     Indication: LOCAL ANAESTHESIA
     Dosage: 40 ML IF
     Dates: start: 20030124, end: 20030124
  3. PREVACID [Concomitant]
  4. MULTIVITAMIN [Concomitant]
  5. PHENERGAN [Concomitant]
  6. REGLAN [Concomitant]
  7. BENTRA [Concomitant]

REACTIONS (2)
  - ANAESTHETIC COMPLICATION [None]
  - BLOOD PRESSURE INCREASED [None]
